FAERS Safety Report 9118031 (Version 2)
Quarter: 2014Q2

REPORT INFORMATION
  Report Type: Spontaneous
  Country: US (occurrence: US)
  Receive Date: 20130208
  Receipt Date: 20140602
  Transmission Date: 20141212
  Serious: No
  Sender: FDA-Public Use
  Company Number: US-009507513-1301USA013231

PATIENT
  Sex: Female
  Weight: 45.35 kg

DRUGS (16)
  1. MIRALAX [Suspect]
     Indication: ABNORMAL FAECES
     Dosage: 17 G, QAM
     Route: 048
     Dates: start: 2011
  2. MIRALAX [Suspect]
     Indication: CONSTIPATION
  3. SOTALOL HYDROCHLORIDE [Concomitant]
     Indication: CARDIAC VALVE DISEASE
     Dosage: 2 DF, QD
  4. PLAVIX [Concomitant]
     Indication: ANTICOAGULANT THERAPY
     Dosage: 75 MG, QD
  5. SIMVASTATIN [Concomitant]
     Indication: BLOOD CHOLESTEROL INCREASED
     Dosage: 1 DF, QD
  6. ZANTAC [Concomitant]
     Indication: PRODUCT USED FOR UNKNOWN INDICATION
     Dosage: 1 DF, QD
  7. OMEGA-3 [Concomitant]
     Indication: PRODUCT USED FOR UNKNOWN INDICATION
     Dosage: UNK, UNKNOWN
  8. VITAMIN D (UNSPECIFIED) [Concomitant]
     Indication: PRODUCT USED FOR UNKNOWN INDICATION
     Dosage: UNK, UNKNOWN
  9. ASCORBIC ACID [Concomitant]
     Indication: PRODUCT USED FOR UNKNOWN INDICATION
     Dosage: UNK, UNKNOWN
  10. VITAMIN B (UNSPECIFIED) [Concomitant]
     Indication: PRODUCT USED FOR UNKNOWN INDICATION
     Dosage: UNK, UNKNOWN
  11. TRETINOIN [Concomitant]
     Indication: SKIN CANCER
     Dosage: UNK, UNKNOWN
  12. BETAMETHASONE DIPROPIONATE (+) CLOTRIMAZOLE [Concomitant]
     Indication: PRURITUS
     Dosage: UNK, UNKNOWN
  13. BETAMETHASONE [Concomitant]
     Indication: ALLERGY TO ANIMAL
     Dosage: UNK, UNKNOWN
  14. PROPOXYPHENE [Concomitant]
     Indication: PAIN
     Dosage: UNK, UNKNOWN
  15. NEXIUM [Concomitant]
     Indication: PRODUCT USED FOR UNKNOWN INDICATION
     Dosage: 20 MG, UNKNOWN
  16. CELEBREX [Concomitant]
     Indication: PRODUCT USED FOR UNKNOWN INDICATION
     Dosage: 200 MG, UNKNOWN

REACTIONS (5)
  - Frequent bowel movements [Unknown]
  - Diarrhoea [Not Recovered/Not Resolved]
  - Incorrect drug administration duration [Unknown]
  - Overdose [Unknown]
  - Off label use [Unknown]
